FAERS Safety Report 6709906-1 (Version None)
Quarter: 2010Q2

REPORT INFORMATION
  Report Type: 
  Country: None (occurrence: None)
  Receive Date: 20100503
  Receipt Date: 20100503
  Transmission Date: 20101027
  Serious: Yes (Other)
  Sender: FDA-Public Use
  Company Number: None

PATIENT
  Sex: Female
  Weight: 22.6799 kg

DRUGS (3)
  1. CHILDREN'S MOTRIN [Suspect]
     Indication: HEADACHE
     Dosage: 2 TSP 6 HOURS PO
     Route: 048
     Dates: start: 20100218, end: 20100219
  2. CHILDREN'S MOTRIN [Suspect]
     Indication: EAR PAIN
     Dosage: 2 TSP 6 HOURS PO
     Route: 048
     Dates: start: 20100324, end: 20100325
  3. CHILDREN'S MOTRIN [Suspect]
     Indication: PYREXIA
     Dosage: 2 TSP 6 HOURS PO
     Route: 048
     Dates: start: 20100324, end: 20100325

REACTIONS (6)
  - ABDOMINAL DISCOMFORT [None]
  - EAR PAIN [None]
  - MALAISE [None]
  - PRODUCT SUBSTITUTION ISSUE [None]
  - PYREXIA [None]
  - VOMITING [None]
